FAERS Safety Report 6979700-5 (Version None)
Quarter: 2010Q3

REPORT INFORMATION
  Report Type: 
  Country: None (occurrence: None)
  Receive Date: 20100913
  Receipt Date: 20100902
  Transmission Date: 20110219
  Serious: Yes (Death)
  Sender: FDA-Public Use
  Company Number: AU-AMGEN-QUU435588

PATIENT
  Sex: Female

DRUGS (2)
  1. NPLATE [Suspect]
     Indication: IDIOPATHIC THROMBOCYTOPENIC PURPURA
     Dates: start: 20100101
  2. CORTICOSTEROID NOS [Concomitant]

REACTIONS (1)
  - GASTROINTESTINAL DISORDER POSTOPERATIVE [None]
